FAERS Safety Report 5786762-X (Version None)
Quarter: 2008Q2

REPORT INFORMATION
  Report Type: 
  Country: None (occurrence: None)
  Receive Date: 20080618
  Receipt Date: 20080606
  Transmission Date: 20081010
  Serious: Yes (Other)
  Sender: FDA-Public Use
  Company Number: UKP08000099

PATIENT
  Age: 79 Year
  Sex: Female
  Weight: 46 kg

DRUGS (5)
  1. ACTONEL WITH CALCIUM (COPACKAGED) [Suspect]
     Indication: OSTEOPOROSIS
     Dosage: 35 MG,ORAL
     Route: 048
     Dates: start: 20080408, end: 20080411
  2. DILTIAZEM HYDROCHLORIDE [Concomitant]
  3. DIAZEPAM [Concomitant]
  4. ISOSORBIDE MONONITRATE [Concomitant]
  5. PAROXETINE HCL [Concomitant]

REACTIONS (1)
  - DIPLOPIA [None]
